FAERS Safety Report 18376217 (Version 2)
Quarter: 2020Q4

REPORT INFORMATION
  Report Type: Spontaneous
  Country: CN (occurrence: CN)
  Receive Date: 20201013
  Receipt Date: 20201109
  Transmission Date: 20210114
  Serious: Yes (Hospitalization)
  Sender: FDA-Public Use
  Company Number: NVSC2020CN272235

PATIENT
  Sex: Male

DRUGS (2)
  1. VOTRIENT [Suspect]
     Active Substance: PAZOPANIB HYDROCHLORIDE
     Indication: RENAL CANCER
     Dosage: UNK (2)
     Route: 048
     Dates: start: 20200926
  2. VOTRIENT [Suspect]
     Active Substance: PAZOPANIB HYDROCHLORIDE
     Indication: LUNG CANCER METASTATIC

REACTIONS (13)
  - Swelling face [Unknown]
  - Nausea [Unknown]
  - Nodule [Unknown]
  - Hypertension [Unknown]
  - Dyspnoea [Unknown]
  - Palmar-plantar erythrodysaesthesia syndrome [Unknown]
  - Pain in extremity [Unknown]
  - Peripheral swelling [Unknown]
  - Feeling hot [Unknown]
  - Eye pain [Unknown]
  - Asthenia [Unknown]
  - Vomiting [Unknown]
  - Erythema [Unknown]
